FAERS Safety Report 20560002 (Version 1)
Quarter: 2022Q1

REPORT INFORMATION
  Report Type: Spontaneous
  Country: US (occurrence: None)
  Receive Date: 20220304
  Receipt Date: 20220304
  Transmission Date: 20220423
  Serious: Yes (Other)
  Sender: FDA-Public Use
  Company Number: None

PATIENT
  Age: 49 Year
  Sex: Female
  Weight: 72 kg

DRUGS (4)
  1. HUMIRA [Suspect]
     Active Substance: ADALIMUMAB
     Indication: Psoriatic arthropathy
     Dosage: FREQUENCY : TWICE A WEEK;?
     Route: 058
     Dates: start: 20220211, end: 20220228
  2. VITAMIN D [Concomitant]
     Active Substance: VITAMIN D NOS
  3. MAGNESIUM [Concomitant]
     Active Substance: MAGNESIUM
  4. VITAMIN B [Concomitant]
     Active Substance: VITAMIN B

REACTIONS (8)
  - Headache [None]
  - Emotional disorder [None]
  - Disorientation [None]
  - Emotional distress [None]
  - Impaired driving ability [None]
  - Crying [None]
  - Memory impairment [None]
  - Self-injurious ideation [None]

NARRATIVE: CASE EVENT DATE: 20220228
